FAERS Safety Report 10602812 (Version 2)
Quarter: 2014Q4

REPORT INFORMATION
  Report Type: Spontaneous
  Country: US (occurrence: US)
  Receive Date: 20141124
  Receipt Date: 20141216
  Transmission Date: 20150529
  Serious: Yes (Hospitalization)
  Sender: FDA-Public Use
  Company Number: US-B.I. PHARMACEUTICALS,INC./RIDGEFIELD-2014-BI-55366BP

PATIENT
  Age: 79 Year
  Sex: Female
  Weight: 77.11 kg

DRUGS (1)
  1. DULCOLAX [Suspect]
     Active Substance: BISACODYL OR DOCUSATE SODIUM
     Indication: FUNCTIONAL GASTROINTESTINAL DISORDER
     Dosage: 10 MG
     Route: 048
     Dates: start: 2004

REACTIONS (8)
  - Joint swelling [Not Recovered/Not Resolved]
  - Cellulitis [Recovered/Resolved]
  - Intraocular pressure increased [Not Recovered/Not Resolved]
  - Joint swelling [Recovered/Resolved]
  - Incorrect drug administration duration [Not Recovered/Not Resolved]
  - Orbital oedema [Recovered/Resolved]
  - Cataract [Not Recovered/Not Resolved]
  - Product use issue [Unknown]

NARRATIVE: CASE EVENT DATE: 2004
